FAERS Safety Report 6158132-6 (Version None)
Quarter: 2009Q2

REPORT INFORMATION
  Report Type: 
  Country: None (occurrence: None)
  Receive Date: 20090417
  Receipt Date: 20090413
  Transmission Date: 20091009
  Serious: Yes (Disabling)
  Sender: FDA-Public Use
  Company Number: BR-ROCHE-627239

PATIENT
  Sex: Female
  Weight: 43 kg

DRUGS (5)
  1. RIVOTRIL [Suspect]
     Indication: FIBROMYALGIA
     Route: 048
     Dates: start: 20030101, end: 20060101
  2. RIVOTRIL [Suspect]
     Dosage: STOP DATE: 2009
     Route: 048
  3. RIVOTRIL [Suspect]
     Route: 048
     Dates: start: 20090401
  4. OSTRIOL [Concomitant]
     Indication: PARATHYROID DISORDER
  5. CHOLECALCIFEROL [Concomitant]
     Dosage: DOSING AMOUNT: 25000 UI
     Route: 048

REACTIONS (4)
  - DRUG INEFFECTIVE [None]
  - INSOMNIA [None]
  - OSTEITIS DEFORMANS [None]
  - WITHDRAWAL SYNDROME [None]
